FAERS Safety Report 25475014 (Version 1)
Quarter: 2025Q2

REPORT INFORMATION
  Report Type: Spontaneous
  Country: US (occurrence: US)
  Receive Date: 20250624
  Receipt Date: 20250624
  Transmission Date: 20250717
  Serious: No
  Sender: REGENERON
  Company Number: US-REGENERON PHARMACEUTICALS, INC.-2024-160987

PATIENT
  Age: 76 Year
  Sex: Male

DRUGS (7)
  1. EYLEA HD [Suspect]
     Active Substance: AFLIBERCEPT
     Indication: Neovascular age-related macular degeneration
     Route: 031
  2. EYLEA HD [Suspect]
     Active Substance: AFLIBERCEPT
     Route: 031
  3. EYLEA HD [Suspect]
     Active Substance: AFLIBERCEPT
     Route: 031
  4. EYLEA HD [Suspect]
     Active Substance: AFLIBERCEPT
     Route: 031
  5. EYLEA HD [Suspect]
     Active Substance: AFLIBERCEPT
     Route: 031
  6. EYLEA HD [Suspect]
     Active Substance: AFLIBERCEPT
     Route: 031
  7. EYLEA HD [Suspect]
     Active Substance: AFLIBERCEPT
     Route: 031

REACTIONS (2)
  - Metamorphopsia [Unknown]
  - Visual acuity reduced transiently [Recovered/Resolved]
